FAERS Safety Report 20578445 (Version 1)
Quarter: 2022Q1

REPORT INFORMATION
  Report Type: Spontaneous
  Country: DE (occurrence: DE)
  Receive Date: 20220310
  Receipt Date: 20220310
  Transmission Date: 20220423
  Serious: No
  Sender: FDA-Public Use
  Company Number: DE-009507513-2203DEU002880

PATIENT
  Age: 81 Year
  Sex: Male

DRUGS (1)
  1. MOLNUPIRAVIR [Suspect]
     Active Substance: MOLNUPIRAVIR
     Dosage: 4 CAPSULES, BID
     Route: 048
     Dates: start: 202203

REACTIONS (1)
  - Product prescribing issue [Unknown]
